FAERS Safety Report 18036856 (Version 3)
Quarter: 2020Q4

REPORT INFORMATION
  Report Type: Spontaneous
  Country: CO (occurrence: CO)
  Receive Date: 20200717
  Receipt Date: 20201207
  Transmission Date: 20210113
  Serious: Yes (Other)
  Sender: FDA-Public Use
  Company Number: CO-PFIZER INC-2020269547

PATIENT
  Age: 52 Year
  Sex: Female

DRUGS (1)
  1. REAMPLA [Suspect]
     Active Substance: PALBOCICLIB
     Dosage: 125 MG, CYCLIC (TAKE 21 DAYS AND REST 7 DAYS)
     Route: 048
     Dates: start: 20200225

REACTIONS (15)
  - Breast pain [Unknown]
  - Neoplasm progression [Unknown]
  - Visual impairment [Unknown]
  - Breast haemorrhage [Unknown]
  - Amnesia [Unknown]
  - Malaise [Unknown]
  - Depression [Unknown]
  - Oral discomfort [Unknown]
  - Stomatitis [Unknown]
  - Keloid scar [Unknown]
  - White blood cell count decreased [Unknown]
  - Crying [Unknown]
  - Asthenia [Unknown]
  - Condition aggravated [Unknown]
  - Pain [Unknown]
